FAERS Safety Report 12711526 (Version 3)
Quarter: 2017Q1

REPORT INFORMATION
  Report Type: Spontaneous
  Country: US (occurrence: US)
  Receive Date: 20160902
  Receipt Date: 20170223
  Transmission Date: 20170428
  Serious: Yes (Hospitalization, Disabling, Other)
  Sender: FDA-Public Use
  Company Number: US-009507513-1608USA012152

PATIENT
  Sex: Female

DRUGS (15)
  1. TEMODAR [Suspect]
     Active Substance: TEMOZOLOMIDE
     Dosage: 200 MG, QD, DAYS 1-7, 15-22  AND AVASTIN DAYS 8 AND 22
     Route: 048
  2. SUNITINIB MALATE. [Concomitant]
     Active Substance: SUNITINIB MALATE
     Dosage: 25 MG EVERY OTHER DAY
  3. MEGACE [Concomitant]
     Active Substance: MEGESTROL ACETATE
     Indication: DECREASED APPETITE
  4. LISINOPRIL (+) HYDROCHLOROTHIAZIDE [Concomitant]
     Active Substance: HYDROCHLOROTHIAZIDE\LISINOPRIL
  5. OXYCONTIN [Concomitant]
     Active Substance: OXYCODONE HYDROCHLORIDE
     Indication: PAIN
     Dosage: 20 MG, BID
  6. FLECAINIDE [Concomitant]
     Active Substance: FLECAINIDE
  7. TEMODAR [Suspect]
     Active Substance: TEMOZOLOMIDE
     Indication: LUNG CARCINOMA CELL TYPE UNSPECIFIED STAGE 0
     Dosage: 250 MG, QD, DAYS 1-7, 15-22  AND AVASTIN DAYS 8 AND 22
     Route: 048
  8. ELIQUIS [Concomitant]
     Active Substance: APIXABAN
  9. TRAZODONE HYDROCHLORIDE. [Concomitant]
     Active Substance: TRAZODONE HYDROCHLORIDE
  10. MIRALAX [Concomitant]
     Active Substance: POLYETHYLENE GLYCOL 3350
  11. BACTRIM DS [Concomitant]
     Active Substance: SULFAMETHOXAZOLE\TRIMETHOPRIM
  12. METOPROLOL TARTRATE. [Concomitant]
     Active Substance: METOPROLOL TARTRATE
  13. AYR SALINE NASAL GEL [Concomitant]
  14. AVASTIN [Suspect]
     Active Substance: BEVACIZUMAB
     Indication: LUNG CARCINOMA CELL TYPE UNSPECIFIED STAGE 0
     Dosage: DAYS 8 AND 22, USED IN COMBINATION WITH TEMODAR
  15. OXYCODONE [Concomitant]
     Active Substance: OXYCODONE
     Indication: PAIN

REACTIONS (7)
  - Neutropenia [Recovering/Resolving]
  - Asthenia [Unknown]
  - Renal failure [Recovering/Resolving]
  - Candida infection [Recovering/Resolving]
  - Therapy non-responder [Unknown]
  - Thrombocytopenia [Unknown]
  - Cytopenia [Unknown]
